FAERS Safety Report 10646405 (Version 5)
Quarter: 2015Q1

REPORT INFORMATION
  Report Type: Spontaneous
  Country: JP (occurrence: JP)
  Receive Date: 20141211
  Receipt Date: 20150108
  Transmission Date: 20150720
  Serious: Yes (Other)
  Sender: FDA-Public Use
  Company Number: JP-PFIZER INC-2014283208

PATIENT
  Age: 78 Year
  Sex: Female
  Weight: 32 kg

DRUGS (14)
  1. CELECOX [Interacting]
     Active Substance: CELECOXIB
     Indication: BACK PAIN
  2. REMINYL [Concomitant]
     Active Substance: GALANTAMINE
     Dosage: UNK
  3. OMEPRAL [Concomitant]
     Active Substance: OMEPRAZOLE
     Dosage: UNK
  4. EVISTA [Concomitant]
     Active Substance: RALOXIFENE HYDROCHLORIDE
     Dosage: UNK
  5. REBAMIPIDE [Concomitant]
     Active Substance: REBAMIPIDE
     Dosage: UNK
  6. BENZALIN [Concomitant]
     Active Substance: NITRAZEPAM
     Dosage: UNK
  7. GABALON [Concomitant]
     Active Substance: BACLOFEN
     Dosage: UNK
  8. CELECOX [Suspect]
     Active Substance: CELECOXIB
     Indication: SPINAL COMPRESSION FRACTURE
     Dosage: 200 MG TWICE DAILY, IN THE MORNING AND AT EVENING (STRENGTH 200MG)
     Route: 048
     Dates: start: 20140929, end: 20140930
  9. RISPERDAL [Interacting]
     Active Substance: RISPERIDONE
     Indication: BEHAVIOURAL AND PSYCHIATRIC SYMPTOMS OF DEMENTIA
     Dosage: 0.5 MG, 1X/DAY (STRENGTH 0.5MG)
     Route: 048
     Dates: start: 20131111, end: 20140928
  10. VESICARE [Concomitant]
     Active Substance: SOLIFENACIN SUCCINATE
     Dosage: 5 MG, UNK
  11. MEMARY [Concomitant]
     Active Substance: MEMANTINE HYDROCHLORIDE
     Dosage: UNK
  12. RISPERDAL [Interacting]
     Active Substance: RISPERIDONE
     Dosage: 0.5 MG, 1X/DAY
     Route: 048
     Dates: start: 20141001, end: 20141021
  13. MYSLEE [Interacting]
     Active Substance: ZOLPIDEM TARTRATE
     Indication: INSOMNIA
     Dosage: 5 MG, 1X/DAY (STRENGTH 5MG)
     Route: 048
  14. METHYCOBAL [Concomitant]
     Active Substance: METHYLCOBALAMIN
     Dosage: UNK

REACTIONS (4)
  - Intentional product use issue [Unknown]
  - Condition aggravated [Recovered/Resolved]
  - Drug interaction [Recovered/Resolved]
  - Parkinson^s disease [Recovered/Resolved]

NARRATIVE: CASE EVENT DATE: 20140930
